FAERS Safety Report 8174386-9 (Version None)
Quarter: 2012Q1

REPORT INFORMATION
  Report Type: 
  Country: None (occurrence: None)
  Receive Date: 20120229
  Receipt Date: 20120215
  Transmission Date: 20120608
  Serious: Yes (Hospitalization)
  Sender: FDA-Public Use
  Company Number: US-BAYER-2011-023341

PATIENT
  Age: 38 Year
  Sex: Female
  Weight: 77.098 kg

DRUGS (16)
  1. LOPRESSOR [Concomitant]
     Indication: POSTURAL ORTHOSTATIC TACHYCARDIA SYNDROME
     Dosage: 25 MG, BID
     Route: 048
     Dates: start: 20070101
  2. GUAIFENESIN/CODEINE [Concomitant]
     Dosage: UNK
     Route: 048
     Dates: start: 20090319
  3. LORATADINE [Concomitant]
     Dosage: 10 MG, QD
     Route: 048
  4. BENADRYL [Concomitant]
  5. PREGABALIN [Concomitant]
     Dosage: 75 MG, BID
     Route: 048
     Dates: start: 20090601
  6. IBUPROFEN [Concomitant]
     Dosage: 400 MG, PRN
     Route: 048
     Dates: start: 20090601
  7. METOCLOPRAMIDE HYDROCHLORIDE [Concomitant]
     Dosage: 10 MG, PRN
     Route: 048
     Dates: start: 20090601
  8. GUAIFENESIN/DEXTROMETHORPHAN [Concomitant]
     Dosage: UNK
     Route: 048
     Dates: start: 20090319
  9. IMITREX [Concomitant]
  10. YAZ [Suspect]
     Indication: MENSTRUATION IRREGULAR
     Dosage: UNK
     Route: 048
     Dates: start: 20080101, end: 20090601
  11. MIDODRINE HYDROCHLORIDE [Concomitant]
     Indication: POSTURAL ORTHOSTATIC TACHYCARDIA SYNDROME
     Dosage: 10 MG, TID
     Route: 048
     Dates: start: 20080101
  12. CONCERTA [Concomitant]
  13. AZITHROMYCIN [Concomitant]
     Dosage: 250 MG, UNK
     Route: 048
     Dates: start: 20090319
  14. REGLAN [Concomitant]
  15. LYRICA [Concomitant]
  16. FIORICET [Concomitant]
     Indication: MIGRAINE
     Route: 048

REACTIONS (3)
  - PULMONARY EMBOLISM [None]
  - DEEP VEIN THROMBOSIS [None]
  - INJURY [None]
